FAERS Safety Report 23754448 (Version 3)
Quarter: 2024Q2

REPORT INFORMATION
  Report Type: Spontaneous
  Country: JP (occurrence: JP)
  Receive Date: 20240418
  Receipt Date: 20240521
  Transmission Date: 20240716
  Serious: Yes (Hospitalization, Other)
  Sender: FDA-Public Use
  Company Number: JP-UCBJ-CD202403160UCBPHAPROD

PATIENT
  Age: 37 Year
  Sex: Female

DRUGS (3)
  1. CIMZIA [Suspect]
     Active Substance: CERTOLIZUMAB PEGOL
     Indication: Juvenile idiopathic arthritis
     Dosage: UNK
     Route: 058
  2. CIMZIA [Suspect]
     Active Substance: CERTOLIZUMAB PEGOL
     Indication: Off label use
  3. PREDNISOLONE [Concomitant]
     Active Substance: PREDNISOLONE
     Indication: Juvenile idiopathic arthritis
     Dosage: 5 MILLIGRAM

REACTIONS (18)
  - Placenta praevia [Unknown]
  - Cachexia [Unknown]
  - Placenta praevia haemorrhage [Unknown]
  - Shock [Unknown]
  - Placenta accreta [Unknown]
  - Haemorrhage in pregnancy [Unknown]
  - Disseminated intravascular coagulation [Unknown]
  - Uterine rupture [Unknown]
  - Hysterectomy [Unknown]
  - Caesarean section [Unknown]
  - Intra-abdominal fluid collection [Unknown]
  - Anaemia [Unknown]
  - In vitro fertilisation [Unknown]
  - Therapeutic embolisation [Unknown]
  - Transfusion [Unknown]
  - Maternal exposure before pregnancy [Unknown]
  - Maternal exposure during pregnancy [Unknown]
  - Off label use [Unknown]
